FAERS Safety Report 15607599 (Version 1)
Quarter: 2018Q4

REPORT INFORMATION
  Report Type: Spontaneous
  Country: US (occurrence: US)
  Receive Date: 20181112
  Receipt Date: 20181112
  Transmission Date: 20190205
  Serious: No
  Sender: FDA-Public Use
  Company Number: PHEH2018US046892

PATIENT
  Sex: Female

DRUGS (1)
  1. VOTRIENT [Suspect]
     Active Substance: PAZOPANIB HYDROCHLORIDE
     Indication: CHLOROMA
     Dosage: 800 MG, QD
     Route: 048
     Dates: start: 20180701

REACTIONS (4)
  - Hair colour changes [Unknown]
  - Dysgeusia [Unknown]
  - Diarrhoea [Unknown]
  - Abdominal pain [Unknown]
